FAERS Safety Report 6347045-2 (Version None)
Quarter: 2009Q3

REPORT INFORMATION
  Report Type: 
  Country: None (occurrence: None)
  Receive Date: 20090910
  Receipt Date: 20090902
  Transmission Date: 20100115
  Serious: Yes (Hospitalization)
  Sender: FDA-Public Use
  Company Number: GB-ABBOTT-09P-167-0595211-00

PATIENT
  Age: 53 Year
  Sex: Male

DRUGS (6)
  1. RITONAVIR SOFT GELATIN CAPSULES [Suspect]
     Indication: HIV INFECTION
     Route: 048
  2. DARUNAVIR [Concomitant]
     Indication: DRUG USE FOR UNKNOWN INDICATION
  3. TRUVADA [Concomitant]
     Indication: DRUG USE FOR UNKNOWN INDICATION
  4. T20 [Concomitant]
     Indication: DRUG USE FOR UNKNOWN INDICATION
  5. TMC125 [Concomitant]
     Indication: HIV INFECTION
  6. TEGRETOL [Concomitant]
     Indication: DRUG USE FOR UNKNOWN INDICATION

REACTIONS (6)
  - DISTURBANCE IN ATTENTION [None]
  - DIZZINESS [None]
  - DRUG INTERACTION [None]
  - FEELING ABNORMAL [None]
  - MEMORY IMPAIRMENT [None]
  - SOMNOLENCE [None]
